FAERS Safety Report 19849814 (Version 2)
Quarter: 2021Q4

REPORT INFORMATION
  Report Type: Spontaneous
  Country: DE (occurrence: DE)
  Receive Date: 20210917
  Receipt Date: 20211007
  Transmission Date: 20220304
  Serious: No
  Sender: FDA-Public Use
  Company Number: DE-ALLERGAN-2131383US

PATIENT

DRUGS (1)
  1. OZURDEX [Suspect]
     Active Substance: DEXAMETHASONE
     Indication: Product used for unknown indication
     Dosage: UNK

REACTIONS (1)
  - Device malfunction [Unknown]
